FAERS Safety Report 25815830 (Version 1)
Quarter: 2025Q3

REPORT INFORMATION
  Report Type: Spontaneous
  Country: US (occurrence: US)
  Receive Date: 20250918
  Receipt Date: 20250918
  Transmission Date: 20251021
  Serious: No
  Sender: CATALYST PHARMA
  Company Number: US-CATALYSTPHARMACEUTICALPARTNERS-US-CATA-24-01095

PATIENT
  Sex: Female

DRUGS (2)
  1. FYCOMPA [Suspect]
     Active Substance: PERAMPANEL
     Indication: Product used for unknown indication
     Dosage: ONE TABLET (6 MG) DAILY
     Route: 048
     Dates: end: 202408
  2. FYCOMPA [Suspect]
     Active Substance: PERAMPANEL
     Dosage: 3 MG DAILY
     Route: 048
     Dates: start: 202408, end: 20240929

REACTIONS (3)
  - Memory impairment [Unknown]
  - Treatment noncompliance [Unknown]
  - Product use issue [Unknown]

NARRATIVE: CASE EVENT DATE: 20240101
